FAERS Safety Report 12705755 (Version 2)
Quarter: 2017Q1

REPORT INFORMATION
  Report Type: Report from Study
  Country: US (occurrence: US)
  Receive Date: 20160901
  Receipt Date: 20170206
  Transmission Date: 20170428
  Serious: Yes (Other)
  Sender: FDA-Public Use
  Company Number: US-AMGEN-USASL2016114605

PATIENT
  Age: 57 Year
  Sex: Male

DRUGS (1)
  1. ENBREL [Suspect]
     Active Substance: ETANERCEPT
     Indication: RHEUMATOID ARTHRITIS
     Dosage: UNK
     Route: 065

REACTIONS (14)
  - Cervical vertebral fracture [Unknown]
  - Drug effect incomplete [Unknown]
  - Pain in extremity [Unknown]
  - Bronchitis [Unknown]
  - Pain [Not Recovered/Not Resolved]
  - Contusion [Unknown]
  - Pneumonia [Unknown]
  - Anxiety [Unknown]
  - Arthralgia [Unknown]
  - Fall [Unknown]
  - Myelopathy [Unknown]
  - Osteoarthritis [Unknown]
  - Gait disturbance [Not Recovered/Not Resolved]
  - Back pain [Unknown]
